FAERS Safety Report 25578850 (Version 2)
Quarter: 2025Q3

REPORT INFORMATION
  Report Type: Spontaneous
  Country: US (occurrence: US)
  Receive Date: 20250718
  Receipt Date: 20250903
  Transmission Date: 20251021
  Serious: Yes (Hospitalization, Other)
  Sender: Kenvue
  Company Number: US-KENVUE-20250703953

PATIENT
  Age: 0 Year
  Sex: Female

DRUGS (3)
  1. TYLENOL [Suspect]
     Active Substance: ACETAMINOPHEN
     Indication: Migraine
     Route: 064
     Dates: start: 2020
  2. TYLENOL [Suspect]
     Active Substance: ACETAMINOPHEN
     Route: 064
  3. MAXALT [Suspect]
     Active Substance: RIZATRIPTAN BENZOATE
     Indication: Migraine
     Route: 064
     Dates: start: 2022

REACTIONS (3)
  - Foetal exposure during pregnancy [Unknown]
  - Premature baby [Not Recovered/Not Resolved]
  - Plagiocephaly [Not Recovered/Not Resolved]

NARRATIVE: CASE EVENT DATE: 20250405
